FAERS Safety Report 7563195-7 (Version None)
Quarter: 2011Q2

REPORT INFORMATION
  Report Type: 
  Country: None (occurrence: None)
  Receive Date: 20110615
  Receipt Date: 20110607
  Transmission Date: 20111010
  Serious: Yes (Other)
  Sender: FDA-Public Use
  Company Number: 2011SP026688

PATIENT
  Sex: Female

DRUGS (1)
  1. IMPLANON [Suspect]
     Indication: PRODUCT USED FOR UNKNOWN INDICATION
     Dates: start: 20101001

REACTIONS (11)
  - ULCER [None]
  - HEADACHE [None]
  - OVARIAN DISORDER [None]
  - POLLAKIURIA [None]
  - FALLOPIAN TUBE DISORDER [None]
  - FATIGUE [None]
  - GLUCOSE TOLERANCE IMPAIRED [None]
  - GASTROINTESTINAL STROMAL TUMOUR [None]
  - ABDOMINAL PAIN [None]
  - PELVIC PAIN [None]
  - BACK PAIN [None]
